FAERS Safety Report 23942306 (Version 1)
Quarter: 2024Q2

REPORT INFORMATION
  Report Type: Spontaneous
  Country: US (occurrence: None)
  Receive Date: 20240604
  Receipt Date: 20240604
  Transmission Date: 20240716
  Serious: Yes (Other)
  Sender: FDA-Public Use
  Company Number: None

PATIENT
  Sex: Female

DRUGS (2)
  1. XOLAIR [Suspect]
     Active Substance: OMALIZUMAB
     Indication: Asthma
     Dosage: FREQ: INJECT 300 MG UNDER THE SKIN (SUBCUTANEOUS INJECTION) EVERY 2 WEEKS?
     Route: 058
     Dates: start: 20170802
  2. FLUTICASONE SPR [Concomitant]

REACTIONS (2)
  - Dyspnoea [None]
  - Product use issue [None]
